FAERS Safety Report 13922478 (Version 1)
Quarter: 2017Q3

REPORT INFORMATION
  Report Type: Other
  Country: US (occurrence: CN)
  Receive Date: 20170830
  Receipt Date: 20170830
  Transmission Date: 20171127
  Serious: Yes (Hospitalization)
  Sender: FDA-Public Use
  Company Number: CN-BRECKENRIDGE PHARMACEUTICAL, INC.-2025326

PATIENT
  Age: 1 Day
  Sex: Male
  Weight: 3.32 kg

DRUGS (1)
  1. OXCARBAZEPINE. [Suspect]
     Active Substance: OXCARBAZEPINE
     Route: 015

REACTIONS (1)
  - Drug withdrawal syndrome neonatal [Recovered/Resolved]
